FAERS Safety Report 24913185 (Version 2)
Quarter: 2025Q1

REPORT INFORMATION
  Report Type: Spontaneous
  Country: IN (occurrence: IN)
  Receive Date: 20250201
  Receipt Date: 20250305
  Transmission Date: 20250408
  Serious: Yes (Other)
  Sender: ABBVIE
  Company Number: IN-ABBVIE-6101272

PATIENT
  Age: 45 Year

DRUGS (1)
  1. OZURDEX [Suspect]
     Active Substance: DEXAMETHASONE
     Indication: Retinal vein occlusion
     Route: 050
     Dates: start: 20250110, end: 20250117

REACTIONS (4)
  - Bacterial endophthalmitis [Recovered/Resolved]
  - Product quality issue [Unknown]
  - Macular oedema [Not Recovered/Not Resolved]
  - Hypopyon [Unknown]

NARRATIVE: CASE EVENT DATE: 20250101
